FAERS Safety Report 7656395-9 (Version None)
Quarter: 2011Q3

REPORT INFORMATION
  Report Type: 
  Country: None (occurrence: None)
  Receive Date: 20110804
  Receipt Date: 20110731
  Transmission Date: 20111222
  Serious: Yes (Other)
  Sender: FDA-Public Use
  Company Number: CA-GLAXOSMITHKLINE-A0939311A

PATIENT
  Sex: Male
  Weight: 63.6 kg

DRUGS (3)
  1. PREDNISONE [Concomitant]
     Indication: DYSPNOEA
  2. ADVAIR DISKUS 100/50 [Suspect]
     Indication: PULMONARY FUNCTION TEST DECREASED
     Dosage: 2PUFF TWICE PER DAY
     Route: 055
     Dates: start: 20110530, end: 20110724
  3. BIAXIN [Suspect]
     Indication: INFECTION PROPHYLAXIS
     Dosage: 1TAB PER DAY
     Route: 065
     Dates: start: 20110530

REACTIONS (4)
  - OBSTRUCTIVE AIRWAYS DISORDER [None]
  - DRUG INTERACTION [None]
  - DIZZINESS [None]
  - CHEST PAIN [None]
